FAERS Safety Report 7972623-4 (Version None)
Quarter: 2011Q4

REPORT INFORMATION
  Report Type: 
  Country: None (occurrence: None)
  Receive Date: 20111213
  Receipt Date: 20111205
  Transmission Date: 20120403
  Serious: Yes (Other)
  Sender: FDA-Public Use
  Company Number: IT-JNJFOC-20111100523

PATIENT
  Sex: Male

DRUGS (3)
  1. ALLURIT [Concomitant]
     Indication: ILL-DEFINED DISORDER
     Route: 048
  2. ATORVASTATIN CALCIUM [Concomitant]
     Indication: ILL-DEFINED DISORDER
     Route: 048
  3. USTEKINUMAB [Suspect]
     Indication: PSORIASIS
     Route: 058
     Dates: start: 20100507, end: 20111012

REACTIONS (1)
  - HEPATIC FUNCTION ABNORMAL [None]
